FAERS Safety Report 11708207 (Version 1)
Quarter: 2015Q4

REPORT INFORMATION
  Report Type: Spontaneous
  Country: US (occurrence: US)
  Receive Date: 20151104
  Receipt Date: 20151104
  Transmission Date: 20160304
  Serious: No
  Sender: FDA-Public Use
  Company Number: US-ELI_LILLY_AND_COMPANY-US201106002852

PATIENT
  Age: 79 Year
  Sex: Female

DRUGS (3)
  1. FORTEO [Suspect]
     Active Substance: TERIPARATIDE
     Dosage: 20 UG, QD
     Dates: start: 20110627, end: 20110630
  2. ANTIBIOTICS [Concomitant]
     Active Substance: UNSPECIFIED INGREDIENT
     Indication: ASTHMA
  3. FORTEO [Suspect]
     Active Substance: TERIPARATIDE
     Indication: OSTEOPOROSIS
     Dosage: 20 UG, QD
     Dates: start: 20110530, end: 20110608

REACTIONS (21)
  - Tremor [Unknown]
  - Heart rate increased [Unknown]
  - Decreased activity [Recovering/Resolving]
  - Abdominal pain upper [Unknown]
  - Headache [Recovering/Resolving]
  - Asthenia [Unknown]
  - Mental impairment [Recovering/Resolving]
  - Dizziness [Recovering/Resolving]
  - Tinnitus [Recovering/Resolving]
  - Feeling abnormal [Unknown]
  - Osteoporosis [Unknown]
  - Gait disturbance [Recovering/Resolving]
  - Abdominal discomfort [Unknown]
  - Malaise [Unknown]
  - Feeling cold [Unknown]
  - Mental disorder [Recovering/Resolving]
  - Weight decreased [Unknown]
  - Fatigue [Recovering/Resolving]
  - Pain [Not Recovered/Not Resolved]
  - Nausea [Recovering/Resolving]
  - Asthenia [Recovering/Resolving]

NARRATIVE: CASE EVENT DATE: 201106
